FAERS Safety Report 17686446 (Version 1)
Quarter: 2020Q2

REPORT INFORMATION
  Report Type: Spontaneous
  Country: US (occurrence: US)
  Receive Date: 20200420
  Receipt Date: 20200420
  Transmission Date: 20200714
  Serious: Yes (Other)
  Sender: FDA-Public Use
  Company Number: US-BEH-2020115885

PATIENT
  Age: 60 Year
  Sex: Male

DRUGS (1)
  1. PRIVIGEN [Suspect]
     Active Substance: HUMAN IMMUNOGLOBULIN G
     Indication: CHRONIC INFLAMMATORY DEMYELINATING POLYRADICULONEUROPATHY
     Dosage: UNK
     Route: 042
     Dates: start: 20170409, end: 20190901

REACTIONS (5)
  - Headache [Unknown]
  - Neck pain [Unknown]
  - Delusion [Unknown]
  - Meningitis aseptic [Unknown]
  - Psychotic disorder [Unknown]
